FAERS Safety Report 23245550 (Version 1)
Quarter: 2023Q4

REPORT INFORMATION
  Report Type: Other
  Country: FR (occurrence: FR)
  Receive Date: 20231130
  Receipt Date: 20231130
  Transmission Date: 20240109
  Serious: Yes (Hospitalization)
  Sender: FDA-Public Use
  Company Number: FR-SA-2023SA193219

PATIENT
  Age: 48 Year
  Sex: Female
  Weight: 77 kg

DRUGS (51)
  1. ETRUMADENANT [Suspect]
     Active Substance: ETRUMADENANT
     Indication: Colorectal cancer
     Dosage: 150 MG, QD
     Route: 065
     Dates: start: 20220117, end: 20220130
  2. ETRUMADENANT [Suspect]
     Active Substance: ETRUMADENANT
     Dosage: 150 MG, QD
     Route: 065
     Dates: start: 20220525, end: 20220617
  3. ETRUMADENANT [Suspect]
     Active Substance: ETRUMADENANT
     Dosage: 150 MG, QD
     Route: 065
     Dates: start: 20220302, end: 20220327
  4. ETRUMADENANT [Suspect]
     Active Substance: ETRUMADENANT
     Dosage: 150 MG, QD
     Route: 065
     Dates: start: 20220329, end: 20220410
  5. ETRUMADENANT [Suspect]
     Active Substance: ETRUMADENANT
     Dosage: 150 MG, QD
     Route: 065
     Dates: start: 20220208, end: 20220227
  6. ETRUMADENANT [Suspect]
     Active Substance: ETRUMADENANT
     Dosage: 150 MG, QD
     Route: 065
     Dates: start: 20220718, end: 20220718
  7. ETRUMADENANT [Suspect]
     Active Substance: ETRUMADENANT
     Dosage: 150 MG, QD
     Route: 065
     Dates: start: 20220619, end: 20220714
  8. ETRUMADENANT [Suspect]
     Active Substance: ETRUMADENANT
     Dosage: 150 MG, QD
     Route: 065
     Dates: start: 20220619, end: 20220714
  9. ETRUMADENANT [Suspect]
     Active Substance: ETRUMADENANT
     Dosage: 150 MG, QD
     Route: 065
     Dates: start: 20220426, end: 20220508
  10. LEUCOVORIN [Suspect]
     Active Substance: LEUCOVORIN\LEUCOVORIN CALCIUM
     Indication: Colorectal cancer
     Dosage: 400 MG, TOTAL
     Route: 065
     Dates: start: 20220704, end: 20220718
  11. LEUCOVORIN [Suspect]
     Active Substance: LEUCOVORIN\LEUCOVORIN CALCIUM
     Dosage: 400 MG, TOTAL
     Route: 065
     Dates: start: 20220607, end: 20220617
  12. LEUCOVORIN [Suspect]
     Active Substance: LEUCOVORIN\LEUCOVORIN CALCIUM
     Dosage: 400 MG, QD
     Route: 065
     Dates: start: 20220103, end: 20220523
  13. ZIMBERELIMAB [Suspect]
     Active Substance: ZIMBERELIMAB
     Indication: Colorectal cancer
     Dosage: 480 MG, Q4W
     Route: 065
     Dates: start: 20220131, end: 20220523
  14. ZIMBERELIMAB [Suspect]
     Active Substance: ZIMBERELIMAB
     Dosage: 480 MG
     Route: 065
     Dates: start: 20220617, end: 20220718
  15. FLUOROURACIL [Suspect]
     Active Substance: FLUOROURACIL
     Indication: Colorectal cancer
     Dosage: 750 MG, QOW
     Route: 065
     Dates: start: 20220103, end: 20220131
  16. FLUOROURACIL [Suspect]
     Active Substance: FLUOROURACIL
     Dosage: 4370 MG
     Route: 065
     Dates: start: 20220718, end: 20220718
  17. FLUOROURACIL [Suspect]
     Active Substance: FLUOROURACIL
     Dosage: 4420 MG
     Route: 065
     Dates: start: 20220704, end: 20220704
  18. FLUOROURACIL [Suspect]
     Active Substance: FLUOROURACIL
     Dosage: 4510 MG
     Route: 065
     Dates: start: 20220117, end: 20220131
  19. FLUOROURACIL [Suspect]
     Active Substance: FLUOROURACIL
     Dosage: 740 MG
     Route: 065
     Dates: start: 20220607, end: 20220617
  20. FLUOROURACIL [Suspect]
     Active Substance: FLUOROURACIL
     Dosage: 740 MG
     Route: 065
     Dates: start: 20220704, end: 20220704
  21. FLUOROURACIL [Suspect]
     Active Substance: FLUOROURACIL
     Dosage: 4490 MG
     Route: 065
     Dates: start: 20220328, end: 20220411
  22. FLUOROURACIL [Suspect]
     Active Substance: FLUOROURACIL
     Dosage: 4460 MG
     Route: 065
     Dates: start: 20220228, end: 20220228
  23. FLUOROURACIL [Suspect]
     Active Substance: FLUOROURACIL
     Dosage: 740 MG
     Route: 065
     Dates: start: 20220228, end: 20220228
  24. FLUOROURACIL [Suspect]
     Active Substance: FLUOROURACIL
     Dosage: 740 MG
     Route: 065
     Dates: start: 20220523, end: 20220523
  25. FLUOROURACIL [Suspect]
     Active Substance: FLUOROURACIL
     Dosage: 4440 MG
     Route: 065
     Dates: start: 20220523, end: 20220523
  26. FLUOROURACIL [Suspect]
     Active Substance: FLUOROURACIL
     Dosage: 1253 MG
     Route: 065
     Dates: start: 20220131, end: 20220131
  27. FLUOROURACIL [Suspect]
     Active Substance: FLUOROURACIL
     Dosage: 4490 MG
     Route: 065
     Dates: start: 20220103, end: 20220103
  28. FLUOROURACIL [Suspect]
     Active Substance: FLUOROURACIL
     Dosage: 4510 MG
     Route: 065
     Dates: start: 20220425, end: 20220509
  29. FLUOROURACIL [Suspect]
     Active Substance: FLUOROURACIL
     Dosage: 4510 MG
     Route: 065
     Dates: start: 20220315, end: 20220315
  30. FLUOROURACIL [Suspect]
     Active Substance: FLUOROURACIL
     Dosage: 3790 MG
     Route: 065
     Dates: start: 20220215, end: 20220215
  31. FLUOROURACIL [Suspect]
     Active Substance: FLUOROURACIL
     Dosage: 630 MG
     Route: 065
     Dates: start: 20220215, end: 20220215
  32. FLUOROURACIL [Suspect]
     Active Substance: FLUOROURACIL
     Dosage: 4440 MG
     Route: 065
     Dates: start: 20220607, end: 20220617
  33. FLUOROURACIL [Suspect]
     Active Substance: FLUOROURACIL
     Dosage: 750 MG
     Route: 065
     Dates: start: 20220315, end: 20220509
  34. BEVACIZUMAB [Suspect]
     Active Substance: BEVACIZUMAB
     Indication: Colorectal cancer
     Dosage: 385 MG
     Route: 065
     Dates: start: 20220425, end: 20220425
  35. BEVACIZUMAB [Suspect]
     Active Substance: BEVACIZUMAB
     Dosage: 380 MG
     Route: 065
     Dates: start: 20220117, end: 20220411
  36. BEVACIZUMAB [Suspect]
     Active Substance: BEVACIZUMAB
     Dosage: 380 MG
     Route: 065
     Dates: start: 20220509, end: 20220509
  37. BEVACIZUMAB [Suspect]
     Active Substance: BEVACIZUMAB
     Dosage: 380 MG
     Route: 065
     Dates: start: 20220523, end: 20220523
  38. BEVACIZUMAB [Suspect]
     Active Substance: BEVACIZUMAB
     Dosage: 115 MG
     Route: 065
     Dates: start: 20220103, end: 20220103
  39. BEVACIZUMAB [Suspect]
     Active Substance: BEVACIZUMAB
     Dosage: 380 MG
     Route: 065
     Dates: start: 20220704, end: 20220704
  40. BEVACIZUMAB [Suspect]
     Active Substance: BEVACIZUMAB
     Dosage: 380 MG
     Route: 065
     Dates: start: 20220607, end: 20220607
  41. OXALIPLATIN [Suspect]
     Active Substance: OXALIPLATIN
     Indication: Colorectal cancer metastatic
     Dosage: 160 MG, QOW
     Route: 065
     Dates: start: 20220103, end: 20220214
  42. METOCLOPRAMIDE [Concomitant]
     Active Substance: METOCLOPRAMIDE
     Dosage: UNK
     Dates: start: 20220104
  43. ALPRAZOLAM [Concomitant]
     Active Substance: ALPRAZOLAM
     Indication: Prophylaxis
     Dosage: UNK
     Dates: start: 20211221
  44. CHLORPROMAZINE [Concomitant]
     Active Substance: CHLORPROMAZINE
     Dosage: UNK
     Dates: start: 20220131
  45. ACETAMINOPHEN [Concomitant]
     Active Substance: ACETAMINOPHEN
     Dates: start: 20220104
  46. APREPITANT [Concomitant]
     Active Substance: APREPITANT
     Indication: Premedication
     Dosage: UNK
     Dates: start: 20211222
  47. MAGNESIUM [Concomitant]
     Active Substance: MAGNESIUM
     Indication: Premedication
     Dosage: UNK
     Dates: start: 20220315
  48. LOPERMIDE [Concomitant]
     Dosage: UNK
     Dates: start: 20220104
  49. DEXCHLORPHENIRAMINE [Concomitant]
     Active Substance: DEXCHLORPHENIRAMINE
     Dates: start: 20220117, end: 20220131
  50. MONTMORILLONITE [Concomitant]
     Active Substance: MONTMORILLONITE
     Dosage: UNK
     Dates: start: 20220104
  51. ONDANSETRON [Concomitant]
     Active Substance: ONDANSETRON
     Dosage: UNK
     Dates: start: 20220201

REACTIONS (2)
  - Pyrexia [Recovered/Resolved]
  - Drug hypersensitivity [Recovered/Resolved]

NARRATIVE: CASE EVENT DATE: 20220214
